FAERS Safety Report 12384233 (Version 3)
Quarter: 2017Q3

REPORT INFORMATION
  Report Type: Spontaneous
  Country: US (occurrence: US)
  Receive Date: 20160519
  Receipt Date: 20170925
  Transmission Date: 20171127
  Serious: No
  Sender: FDA-Public Use
  Company Number: US-ASTRAZENECA-2016SE38062

PATIENT
  Age: 29402 Day
  Sex: Male
  Weight: 98 kg

DRUGS (3)
  1. TUDORZA PRESSAIR [Suspect]
     Active Substance: ACLIDINIUM BROMIDE
     Dosage: 400 UG, ONE PUFF, TWO TIMES A DAY
     Route: 055
     Dates: start: 2014
  2. AMOX-CALV [Concomitant]
     Dosage: 875 MG, TWO TIMES A DAY
     Route: 048
  3. TUDORZA PRESSAIR [Suspect]
     Active Substance: ACLIDINIUM BROMIDE
     Dosage: 400 UG, ONE PUFF, TWO TIMES A DAY
     Route: 055
     Dates: start: 20160323

REACTIONS (5)
  - Lower respiratory tract infection [Unknown]
  - Drug dose omission [Unknown]
  - Device malfunction [Unknown]
  - Intentional device misuse [Unknown]
  - Body height decreased [Unknown]

NARRATIVE: CASE EVENT DATE: 20160404
